FAERS Safety Report 9105674 (Version 1)
Quarter: 2013Q1

REPORT INFORMATION
  Report Type: Spontaneous
  Country: US (occurrence: US)
  Receive Date: 20130220
  Receipt Date: 20130220
  Transmission Date: 20140127
  Serious: No
  Sender: FDA-Public Use
  Company Number: US-ROXANE LABORATORIES, INC.-2013-RO-00275RO

PATIENT
  Age: 60 Year
  Sex: Male
  Weight: 147 kg

DRUGS (2)
  1. PREDNISONE [Suspect]
     Indication: IDIOPATHIC PULMONARY FIBROSIS
     Dates: start: 2009
  2. PIRFENIDONE [Concomitant]
     Indication: IDIOPATHIC PULMONARY FIBROSIS

REACTIONS (2)
  - Increased appetite [Recovered/Resolved]
  - Abnormal weight gain [Recovered/Resolved]
